FAERS Safety Report 20352008 (Version 1)
Quarter: 2022Q1

REPORT INFORMATION
  Report Type: Spontaneous
  Country: AF (occurrence: AF)
  Receive Date: 20220119
  Receipt Date: 20220119
  Transmission Date: 20220423
  Serious: Yes (Other)
  Sender: FDA-Public Use
  Company Number: AF-SA-2022SA011202

PATIENT
  Age: 30 Year
  Sex: Female

DRUGS (8)
  1. ISONIAZID [Suspect]
     Active Substance: ISONIAZID
     Indication: Peritoneal tuberculosis
     Dosage: UNK
  2. ISONIAZID [Suspect]
     Active Substance: ISONIAZID
     Indication: Budd-Chiari syndrome
  3. RIFAMPIN [Suspect]
     Active Substance: RIFAMPIN
     Indication: Peritoneal tuberculosis
     Dosage: UNK
  4. RIFAMPIN [Suspect]
     Active Substance: RIFAMPIN
     Indication: Budd-Chiari syndrome
  5. PYRAZINAMIDE [Suspect]
     Active Substance: PYRAZINAMIDE
     Indication: Peritoneal tuberculosis
     Dosage: UNK
  6. PYRAZINAMIDE [Suspect]
     Active Substance: PYRAZINAMIDE
     Indication: Budd-Chiari syndrome
  7. ETHAMBUTOL [Suspect]
     Active Substance: ETHAMBUTOL HYDROCHLORIDE
     Indication: Peritoneal tuberculosis
     Dosage: UNK
  8. ETHAMBUTOL [Suspect]
     Active Substance: ETHAMBUTOL HYDROCHLORIDE
     Indication: Budd-Chiari syndrome

REACTIONS (12)
  - Budd-Chiari syndrome [Recovering/Resolving]
  - Unintentional use for unapproved indication [Recovering/Resolving]
  - Restlessness [Recovering/Resolving]
  - Decreased appetite [Recovering/Resolving]
  - Jaundice [Recovering/Resolving]
  - Vomiting [Recovering/Resolving]
  - Oedema peripheral [Recovering/Resolving]
  - Nausea [Recovering/Resolving]
  - Condition aggravated [Recovering/Resolving]
  - Ascites [Recovering/Resolving]
  - Abdominal tenderness [Recovering/Resolving]
  - Splenomegaly [Recovering/Resolving]
